FAERS Safety Report 5793902-5 (Version None)
Quarter: 2008Q2

REPORT INFORMATION
  Report Type: 
  Country: None (occurrence: None)
  Receive Date: 20080627
  Receipt Date: 20080620
  Transmission Date: 20081010
  Serious: No
  Sender: FDA-Public Use
  Company Number: US-BOEHRINGER INGELHEIM GMBH, GERMANY-2005-BP-19194BP

PATIENT
  Age: 61 Year
  Sex: Male
  Weight: 114.76 kg

DRUGS (8)
  1. FLOMAX [Suspect]
     Indication: BENIGN PROSTATIC HYPERPLASIA
     Route: 048
     Dates: start: 20021201
  2. ALPRAZOLAM [Concomitant]
  3. HYDROCHLOROTHIAZIDE [Concomitant]
  4. NIFEDIPINE [Concomitant]
     Route: 048
  5. ASPIRIN [Concomitant]
     Route: 048
  6. PRILOSEC [Concomitant]
  7. PROZAC [Concomitant]
     Route: 048
  8. XANAX [Concomitant]

REACTIONS (15)
  - BREAST ENLARGEMENT [None]
  - DISTURBANCE IN ATTENTION [None]
  - DRUG INEFFECTIVE [None]
  - DYSURIA [None]
  - EATING DISORDER [None]
  - HEADACHE [None]
  - INSOMNIA [None]
  - NASAL CONGESTION [None]
  - NERVOUSNESS [None]
  - RESIDUAL URINE [None]
  - SEXUAL DYSFUNCTION [None]
  - TERMINAL DRIBBLING [None]
  - URINARY HESITATION [None]
  - URINE FLOW DECREASED [None]
  - WEIGHT INCREASED [None]
